FAERS Safety Report 5105233-7 (Version None)
Quarter: 2006Q3

REPORT INFORMATION
  Report Type: 
  Country: None (occurrence: None)
  Receive Date: 20060911
  Receipt Date: 20060901
  Transmission Date: 20061208
  Serious: Yes (Other)
  Sender: FDA-Public Use
  Company Number: 008514

PATIENT
  Sex: Female

DRUGS (2)
  1. MEDROXYPROGESTERONE ACETATE [Suspect]
     Dosage: ORAL
     Route: 048
     Dates: start: 19980101, end: 20020101
  2. PREMPRO [Suspect]
     Dosage: ORAL
     Route: 049
     Dates: start: 19980101, end: 20020101

REACTIONS (1)
  - BREAST CANCER FEMALE [None]
